FAERS Safety Report 10077976 (Version 1)
Quarter: 2014Q2

REPORT INFORMATION
  Report Type: Report from Study
  Country: PL (occurrence: PL)
  Receive Date: 20140415
  Receipt Date: 20140415
  Transmission Date: 20141212
  Serious: Yes (Other)
  Sender: FDA-Public Use
  Company Number: PL-ROCHE-1379305

PATIENT
  Age: 70 Year
  Sex: 0

DRUGS (1)
  1. BEVACIZUMAB [Suspect]
     Indication: CLEAR CELL RENAL CELL CARCINOMA
     Route: 065
     Dates: start: 200905, end: 200906

REACTIONS (4)
  - Pyrexia [Unknown]
  - Chills [Unknown]
  - Headache [Unknown]
  - Asthenia [Unknown]
